FAERS Safety Report 10977415 (Version 1)
Quarter: 2015Q2

REPORT INFORMATION
  Report Type: Report from Study
  Country: US (occurrence: US)
  Receive Date: 20150402
  Receipt Date: 20150402
  Transmission Date: 20150821
  Serious: Yes (Other)
  Sender: FDA-Public Use
  Company Number: US-AMGEN-USASL2015029363

PATIENT
  Age: 69 Year
  Sex: Female

DRUGS (1)
  1. ENBREL [Suspect]
     Active Substance: ETANERCEPT
     Indication: SYSTEMIC LUPUS ERYTHEMATOSUS
     Dosage: 50 MG, QWK
     Route: 065
     Dates: start: 20140924

REACTIONS (7)
  - Off label use [Not Recovered/Not Resolved]
  - Joint arthroplasty [Recovered/Resolved]
  - Injection site pruritus [Recovered/Resolved]
  - Injection site mass [Recovered/Resolved]
  - Arthralgia [Not Recovered/Not Resolved]
  - Bronchitis [Recovered/Resolved]
  - Joint swelling [Not Recovered/Not Resolved]

NARRATIVE: CASE EVENT DATE: 201409
